FAERS Safety Report 6423672-9 (Version None)
Quarter: 2009Q4

REPORT INFORMATION
  Report Type: 
  Country: None (occurrence: None)
  Receive Date: 20091102
  Receipt Date: 20091019
  Transmission Date: 20100525
  Serious: Yes (Other)
  Sender: FDA-Public Use
  Company Number: US-MERCK-0910USA00718

PATIENT
  Age: 29 Month
  Sex: Female

DRUGS (2)
  1. SINGULAIR [Suspect]
     Indication: ASTHMA
     Route: 048
     Dates: start: 20090429, end: 20090601
  2. SINGULAIR [Suspect]
     Indication: HYPERSENSITIVITY
     Route: 048
     Dates: start: 20090429, end: 20090601

REACTIONS (6)
  - AGGRESSION [None]
  - BITE [None]
  - COUGH [None]
  - MALAISE [None]
  - PHYSICAL ASSAULT [None]
  - RHINORRHOEA [None]
